FAERS Safety Report 5096695-2 (Version None)
Quarter: 2006Q3

REPORT INFORMATION
  Report Type: 
  Country: None (occurrence: None)
  Receive Date: 20060831
  Receipt Date: 20060817
  Transmission Date: 20061208
  Serious: Yes (Other)
  Sender: FDA-Public Use
  Company Number: 2006-BP-09672RO

PATIENT
  Age: 35 Year
  Sex: Male

DRUGS (3)
  1. METHOTREXATE [Suspect]
     Indication: PSORIATIC ARTHROPATHY
     Dosage: 17.5 MG/WEEK (1 IN 1 WK)
  2. METHYLPREDNISOLONE [Suspect]
     Indication: PSORIATIC ARTHROPATHY
     Dosage: 5 MG DAILY
  3. CYCLOSPORINE [Suspect]
     Indication: PSORIATIC ARTHROPATHY
     Dosage: 2.5 MG TO 4 MG/KG DAILY

REACTIONS (4)
  - CONDITION AGGRAVATED [None]
  - GINGIVAL HYPERPLASIA [None]
  - HAEMANGIOMA [None]
  - THERAPY NON-RESPONDER [None]
